FAERS Safety Report 5502821-0 (Version None)
Quarter: 2007Q4

REPORT INFORMATION
  Report Type: 
  Country: None (occurrence: None)
  Receive Date: 20071029
  Receipt Date: 20071022
  Transmission Date: 20080405
  Serious: Yes (Life-Threatening, Hospitalization)
  Sender: FDA-Public Use
  Company Number: CLOF-10700

PATIENT
  Age: 14 Year
  Sex: Male
  Weight: 92 kg

DRUGS (2)
  1. CLOFARABINE. MFR: GENZYME [Suspect]
     Indication: ACUTE LYMPHOCYTIC LEUKAEMIA
     Dosage: 40 MG/M2
     Dates: start: 20071001, end: 20071006
  2. CYTARABINE [Suspect]
     Indication: ACUTE LYMPHOCYTIC LEUKAEMIA
     Dosage: 1000 MG/M2
     Dates: start: 20071001, end: 20071005

REACTIONS (3)
  - HYPOTENSION [None]
  - NEUTROPENIC INFECTION [None]
  - PANCREATITIS [None]
